FAERS Safety Report 8195351-1 (Version None)
Quarter: 2012Q1

REPORT INFORMATION
  Report Type: 
  Country: None (occurrence: None)
  Receive Date: 20120308
  Receipt Date: 20120118
  Transmission Date: 20120608
  Serious: Yes (Hospitalization)
  Sender: FDA-Public Use
  Company Number: US-GLAXOSMITHKLINE-A0962459A

PATIENT
  Sex: Male

DRUGS (1)
  1. TYKERB [Suspect]
     Indication: BREAST CANCER MALE
     Dosage: 250MG SEE DOSAGE TEXT
     Route: 048

REACTIONS (2)
  - CONVULSION [None]
  - INFECTION [None]
